FAERS Safety Report 14732166 (Version 1)
Quarter: 2018Q2

REPORT INFORMATION
  Report Type: Spontaneous
  Country: US (occurrence: US)
  Receive Date: 20180409
  Receipt Date: 20180409
  Transmission Date: 20180711
  Serious: No
  Sender: FDA-Public Use
  Company Number: US-JNJFOC-20180326586

PATIENT
  Sex: Male

DRUGS (1)
  1. TYLENOL EXTRA STRENGTH [Suspect]
     Active Substance: ACETAMINOPHEN
     Indication: PRODUCT USE IN UNAPPROVED INDICATION
     Route: 048

REACTIONS (2)
  - Overdose [Not Recovered/Not Resolved]
  - Skin discolouration [Not Recovered/Not Resolved]
